FAERS Safety Report 7387180-3 (Version None)
Quarter: 2011Q1

REPORT INFORMATION
  Report Type: 
  Country: None (occurrence: None)
  Receive Date: 20110331
  Receipt Date: 20110321
  Transmission Date: 20110831
  Serious: Yes (Life-Threatening, Hospitalization)
  Sender: FDA-Public Use
  Company Number: B0707499A

PATIENT
  Sex: Female

DRUGS (4)
  1. CLARITIN [Concomitant]
     Route: 048
     Dates: start: 20101221, end: 20101224
  2. ZOPHREN [Suspect]
     Indication: PREMEDICATION
     Dosage: 8MG PER DAY
     Route: 042
     Dates: start: 20101224, end: 20101224
  3. SOLU-MEDROL [Suspect]
     Indication: PREMEDICATION
     Dosage: 60MG PER DAY
     Route: 042
     Dates: start: 20101224, end: 20101224
  4. ZANTAC [Suspect]
     Indication: PREMEDICATION
     Dosage: 50MG PER DAY
     Route: 042
     Dates: start: 20101224, end: 20101224

REACTIONS (5)
  - VOMITING [None]
  - ANAPHYLACTIC REACTION [None]
  - ABDOMINAL PAIN [None]
  - BRONCHOSPASM [None]
  - OXYGEN SATURATION DECREASED [None]
